FAERS Safety Report 4376291-2 (Version None)
Quarter: 2004Q2

REPORT INFORMATION
  Report Type: 
  Country: None (occurrence: None)
  Receive Date: 20040601
  Receipt Date: 20030818
  Transmission Date: 20050107
  Serious: Yes (Other)
  Sender: FDA-Public Use
  Company Number: PHEH2003US05484

PATIENT
  Age: 58 Year
  Sex: Female
  Weight: 76.2 kg

DRUGS (2)
  1. DESFERAL [Suspect]
     Indication: BLOOD IRON NORMAL
     Dosage: 3070 MG, QHS OVER 12 HOURS, SUBCUTANEOUS
     Route: 058
     Dates: start: 20030506
  2. MV (VITAMINS NOS) [Concomitant]

REACTIONS (2)
  - BLISTER [None]
  - PLATELET COUNT DECREASED [None]
